FAERS Safety Report 7219690-3 (Version None)
Quarter: 2011Q1

REPORT INFORMATION
  Report Type: 
  Country: None (occurrence: None)
  Receive Date: 20110111
  Receipt Date: 20110106
  Transmission Date: 20110831
  Serious: Yes (Hospitalization, Other)
  Sender: FDA-Public Use
  Company Number: FR-BRISTOL-MYERS SQUIBB COMPANY-15477524

PATIENT
  Age: 72 Year
  Sex: Male

DRUGS (2)
  1. AXEPIM INJ 2 GM [Suspect]
     Dosage: DOSE REDUCED TO 500MG DAILY.
     Route: 042
     Dates: start: 20100924, end: 20101124
  2. TAVANIC [Suspect]
     Dosage: DOSE REDUCED TO 250MG EVERY 48H.
     Route: 048
     Dates: start: 20100924, end: 20101124

REACTIONS (4)
  - RENAL FAILURE ACUTE [None]
  - TREMOR [None]
  - VERTIGO [None]
  - OVERDOSE [None]
